FAERS Safety Report 6746511-5 (Version None)
Quarter: 2010Q2

REPORT INFORMATION
  Report Type: 
  Country: None (occurrence: None)
  Receive Date: 20100528
  Receipt Date: 20090223
  Transmission Date: 20101027
  Serious: No
  Sender: FDA-Public Use
  Company Number: US-ASTRAZENECA-2010SE00520

PATIENT
  Age: 52 Year
  Sex: Female

DRUGS (10)
  1. PRILOSEC OTC [Suspect]
     Indication: GASTROOESOPHAGEAL REFLUX DISEASE
     Dosage: UNKNOWN
     Route: 048
  2. CITALOPRAM [Concomitant]
     Indication: ANXIETY
     Route: 048
  3. DEXAMETHASONE [Concomitant]
     Indication: PROPHYLAXIS
     Route: 048
  4. HYDROMORPHONE HCL [Concomitant]
     Indication: CANCER PAIN
     Route: 048
  5. IRON [Concomitant]
     Indication: BLOOD DISORDER
     Route: 048
  6. METOCLOPRAMIDE [Concomitant]
     Indication: NAUSEA
     Route: 048
  7. MORPHINE [Concomitant]
     Indication: CANCER PAIN
     Route: 048
  8. ONDANSETRON [Concomitant]
     Indication: NAUSEA
     Dosage: 8 MG  EVERY 8HR
     Route: 048
  9. STOOL SOFTENER [Concomitant]
     Dosage: UNKNOWN
  10. MIRALAX [Concomitant]
     Indication: CONSTIPATION
     Dosage: UNKNOWN

REACTIONS (1)
  - GASTRIC DISORDER [None]
